FAERS Safety Report 9713398 (Version 3)
Quarter: 2013Q4

REPORT INFORMATION
  Report Type: Spontaneous
  Country: GB (occurrence: GB)
  Receive Date: 20131126
  Receipt Date: 20131204
  Transmission Date: 20140711
  Serious: Yes (Death, Other)
  Sender: FDA-Public Use
  Company Number: GB-PFIZER INC-2013332721

PATIENT
  Age: 42 Year
  Sex: Male

DRUGS (8)
  1. METHYLPREDNISOLONE [Suspect]
     Indication: SALVAGE THERAPY
     Dosage: 2 CYCLES
  2. ETOPOSIDE [Suspect]
     Indication: SALVAGE THERAPY
     Dosage: 2 CYCLES
  3. ETOPOSIDE [Suspect]
     Dosage: UNK
  4. CISPLATIN [Suspect]
     Indication: SALVAGE THERAPY
     Dosage: 2 CYCLES
  5. CYTARABINE [Suspect]
     Indication: SALVAGE THERAPY
     Dosage: 2 CYCLES
  6. CYTARABINE [Suspect]
     Dosage: UNK
  7. CARMUSTINE [Suspect]
     Dosage: UNK
  8. MELPHALAN [Suspect]
     Dosage: UNK

REACTIONS (3)
  - Disease recurrence [Fatal]
  - Non-Hodgkin^s lymphoma [Fatal]
  - Pancytopenia [Fatal]
